FAERS Safety Report 9456116 (Version 1)
Quarter: 2013Q3

REPORT INFORMATION
  Report Type: Spontaneous
  Country: US (occurrence: None)
  Receive Date: 20130812
  Receipt Date: 20130812
  Transmission Date: 20140515
  Serious: Yes (Death, Hospitalization, Disabling, Other)
  Sender: FDA-Public Use
  Company Number: None

PATIENT
  Age: 78 Year
  Sex: Male
  Weight: 70.31 kg

DRUGS (12)
  1. XARELTO [Suspect]
     Indication: ATRIAL FIBRILLATION
     Route: 048
     Dates: start: 2012, end: 201306
  2. SPIRONOLACTINE [Concomitant]
  3. TERAZOSIN [Concomitant]
  4. LASIX [Concomitant]
  5. ASA [Concomitant]
  6. FLO-MAX [Concomitant]
  7. ACCUPRIL [Concomitant]
  8. LIPITOR [Concomitant]
  9. DULEOLAX [Concomitant]
  10. FESOL [Concomitant]
  11. VIT D [Concomitant]
  12. POTASSIUM (ELUCER) [Concomitant]

REACTIONS (2)
  - Cerebrovascular accident [None]
  - Fall [None]
